FAERS Safety Report 21947241 (Version 1)
Quarter: 2023Q1

REPORT INFORMATION
  Report Type: Spontaneous
  Country: DK (occurrence: DK)
  Receive Date: 20230202
  Receipt Date: 20230202
  Transmission Date: 20230418
  Serious: Yes (Hospitalization)
  Sender: FDA-Public Use
  Company Number: None

PATIENT
  Age: 91 Year
  Sex: Male

DRUGS (11)
  1. PIPERACILLIN AND TAZOBACTAM [Suspect]
     Active Substance: PIPERACILLIN SODIUM\TAZOBACTAM SODIUM
     Indication: Pneumonia aspiration
     Dosage: STRENGTH: 4 PLUS 0.5G
     Route: 042
     Dates: start: 20230105, end: 20230111
  2. ACETAMINOPHEN [Concomitant]
     Active Substance: ACETAMINOPHEN
     Indication: Pain
     Dates: start: 20221205
  3. GANGIDEN [Concomitant]
     Indication: Constipation
     Dates: start: 20230105
  4. NYSTATIN ORIFARM [Concomitant]
     Indication: Oral fungal infection
     Dates: start: 20230105
  5. ALFACALCIDOL ORIFARM [Concomitant]
     Indication: Calcium metabolism disorder
     Dates: start: 20221124
  6. GABAPENTIN [Concomitant]
     Active Substance: GABAPENTIN
     Indication: Pain
     Dates: start: 20221224
  7. ELIQUIS [Concomitant]
     Active Substance: APIXABAN
     Indication: Thrombosis prophylaxis
     Dates: start: 20221124
  8. UNIKALK MED D-VITAMIN [Concomitant]
     Indication: Mineral supplementation
     Dates: start: 20221124
  9. DIGOXIN [Concomitant]
     Active Substance: DIGOXIN
     Indication: Heart rate irregular
     Dates: start: 20221108
  10. PREDNISOLONE [Concomitant]
     Active Substance: PREDNISOLONE
     Indication: Adrenocortical steroid therapy
     Dates: start: 20221218
  11. MIANSERIN [Concomitant]
     Active Substance: MIANSERIN
     Indication: Sedative therapy
     Dates: start: 20221224

REACTIONS (1)
  - Thrombocytopenia [Not Recovered/Not Resolved]

NARRATIVE: CASE EVENT DATE: 20230109
